FAERS Safety Report 8276016-4 (Version None)
Quarter: 2012Q2

REPORT INFORMATION
  Report Type: 
  Country: None (occurrence: None)
  Receive Date: 20120412
  Receipt Date: 20120404
  Transmission Date: 20120825
  Serious: Yes (Other)
  Sender: FDA-Public Use
  Company Number: JP-JNJFOC-20120312400

PATIENT
  Age: 11 Year
  Sex: Male

DRUGS (8)
  1. MUCODYNE [Concomitant]
     Route: 048
  2. AMBROXOL HYDROCHLORIDE [Concomitant]
     Route: 048
  3. SPIROPENT [Interacting]
     Indication: PRODUCT USED FOR UNKNOWN INDICATION
     Route: 048
  4. AZEPTIN [Concomitant]
     Route: 048
  5. RISPERDAL [Suspect]
     Indication: PRODUCT USED FOR UNKNOWN INDICATION
     Route: 048
  6. SINGULAIR [Interacting]
     Indication: PRODUCT USED FOR UNKNOWN INDICATION
     Route: 048
  7. MEPTIN [Concomitant]
     Route: 048
  8. PRANLUKAST [Concomitant]
     Route: 048

REACTIONS (2)
  - DRUG INTERACTION [None]
  - TORTICOLLIS [None]
